FAERS Safety Report 8216760-8 (Version None)
Quarter: 2012Q1

REPORT INFORMATION
  Report Type: 
  Country: None (occurrence: None)
  Receive Date: 20120316
  Receipt Date: 20111227
  Transmission Date: 20120608
  Serious: Yes (Other)
  Sender: FDA-Public Use
  Company Number: US-ROCHE-1049429

PATIENT
  Sex: Female

DRUGS (4)
  1. INHALED STEROIDS NOS [Concomitant]
  2. OMALIZUMAB [Suspect]
     Indication: PRODUCT USED FOR UNKNOWN INDICATION
     Route: 058
     Dates: start: 20111212
  3. ADVAIR DISKUS 100/50 [Concomitant]
  4. SYMBICORT [Concomitant]

REACTIONS (2)
  - ASTHMA [None]
  - DYSPNOEA [None]
